FAERS Safety Report 18774225 (Version 1)
Quarter: 2021Q1

REPORT INFORMATION
  Report Type: Spontaneous
  Country: US (occurrence: US)
  Receive Date: 20210122
  Receipt Date: 20210122
  Transmission Date: 20210419
  Serious: Yes (Congenital Anomaly)
  Sender: FDA-Public Use
  Company Number: US-PFIZER INC-2021023206

PATIENT
  Sex: Male

DRUGS (1)
  1. METHIMAZOLE. [Suspect]
     Active Substance: METHIMAZOLE
     Dosage: UNK
     Route: 064

REACTIONS (8)
  - Vitello-intestinal duct remnant [Unknown]
  - Intestinal cyst [Unknown]
  - Gastric cyst [Unknown]
  - Hamartoma [Unknown]
  - Maternal exposure during pregnancy [Unknown]
  - Tracheo-oesophageal fistula [Unknown]
  - Exomphalos [Unknown]
  - Premature baby [Unknown]
